FAERS Safety Report 23720862 (Version 1)
Quarter: 2024Q2

REPORT INFORMATION
  Report Type: Spontaneous
  Country: US (occurrence: US)
  Receive Date: 20240409
  Receipt Date: 20240409
  Transmission Date: 20240715
  Serious: Yes (Hospitalization, Other)
  Sender: FDA-Public Use
  Company Number: US-002147023-NVSC2024US069755

PATIENT
  Age: 78 Year
  Sex: Female
  Weight: 58.503 kg

DRUGS (32)
  1. MYFORTIC [Suspect]
     Active Substance: MYCOPHENOLATE SODIUM
     Indication: Product used for unknown indication
     Dosage: UNK (RESTART) (ENTERIC TABLET)
     Route: 048
     Dates: start: 20240105
  2. MYFORTIC [Suspect]
     Active Substance: MYCOPHENOLATE SODIUM
     Dosage: 720 MG, BID
     Route: 048
  3. IMODIUM [Suspect]
     Active Substance: LOPERAMIDE HYDROCHLORIDE
     Indication: Diarrhoea
     Dosage: 8 MG
     Route: 065
     Dates: start: 20231203
  4. TYVASO [Suspect]
     Active Substance: TREPROSTINIL
     Indication: Pulmonary arterial hypertension
     Dosage: 18 UG, QID (INHALATION GAS)
     Dates: start: 202306, end: 2023
  5. TYVASO [Suspect]
     Active Substance: TREPROSTINIL
     Dosage: 24 UG, QID
     Dates: start: 2023, end: 2023
  6. TYVASO [Suspect]
     Active Substance: TREPROSTINIL
     Dosage: 30 UG, QID
     Dates: start: 2023, end: 2023
  7. TYVASO [Suspect]
     Active Substance: TREPROSTINIL
     Dosage: 42 UG, QID
     Dates: start: 2023, end: 20231007
  8. TYVASO [Suspect]
     Active Substance: TREPROSTINIL
     Dosage: 48 UG, QID
     Dates: start: 20231007, end: 202310
  9. TYVASO [Suspect]
     Active Substance: TREPROSTINIL
     Dosage: 54 UG, QID
     Dates: start: 20231022, end: 20231106
  10. TYVASO [Suspect]
     Active Substance: TREPROSTINIL
     Dosage: 60 UG, QID
     Dates: start: 20231106, end: 20231114
  11. TYVASO [Suspect]
     Active Substance: TREPROSTINIL
     Dosage: 54 UG, QID (DOSE DECREASED)
     Dates: start: 20231114, end: 20231127
  12. TYVASO [Suspect]
     Active Substance: TREPROSTINIL
     Dosage: 60 UG, QID
     Dates: start: 20231127, end: 20231201
  13. TYVASO [Suspect]
     Active Substance: TREPROSTINIL
     Dosage: 54 UG, QID
     Dates: start: 20231201
  14. TYVASO [Suspect]
     Active Substance: TREPROSTINIL
     Dosage: UNK
     Dates: start: 20230604
  15. ALBUTEROL [Suspect]
     Active Substance: ALBUTEROL
     Indication: Cough
     Dosage: UNK (ONCE/ONCE TO TWICE/MORE OFTEN)
     Dates: start: 2023
  16. ALBUTEROL [Suspect]
     Active Substance: ALBUTEROL
     Indication: Bronchospasm
     Dosage: UNK (90 MCG/ ACTUATION; 2 PUFFS INTO THE LUNGS)
  17. LASIX [Concomitant]
     Active Substance: FUROSEMIDE
     Indication: Product used for unknown indication
     Dosage: UNK
     Route: 065
  18. ATROVENT HFA [Concomitant]
     Active Substance: IPRATROPIUM BROMIDE
     Indication: Product used for unknown indication
     Dosage: UNK
     Route: 065
  19. FENOTEROL HYDROBROMIDE [Concomitant]
     Active Substance: FENOTEROL HYDROBROMIDE
     Indication: Product used for unknown indication
     Dosage: UNK
     Route: 065
  20. LIPITOR [Concomitant]
     Active Substance: ATORVASTATIN CALCIUM
     Indication: Product used for unknown indication
     Dosage: UNK
     Route: 065
  21. TESSALON [Concomitant]
     Active Substance: BENZONATATE
     Indication: Product used for unknown indication
     Dosage: UNK
     Route: 065
  22. BETAMETHASONE DIPROPIONATE [Concomitant]
     Active Substance: BETAMETHASONE DIPROPIONATE
     Indication: Product used for unknown indication
     Dosage: UNK
     Route: 065
  23. SYMBICORT [Concomitant]
     Active Substance: BUDESONIDE\FORMOTEROL FUMARATE DIHYDRATE
     Indication: Product used for unknown indication
     Dosage: UNK
     Route: 065
  24. BUSPAR [Concomitant]
     Active Substance: BUSPIRONE HYDROCHLORIDE
     Indication: Product used for unknown indication
     Dosage: UNK
     Route: 065
  25. ZYRTEC [Concomitant]
     Active Substance: CETIRIZINE HYDROCHLORIDE
     Indication: Product used for unknown indication
     Dosage: UNK
     Route: 065
  26. VAGIFEM [Concomitant]
     Active Substance: ESTRADIOL
     Indication: Product used for unknown indication
     Dosage: 10 UG
     Route: 065
  27. YUVAFEM [Concomitant]
     Active Substance: ESTRADIOL HEMIHYDRATE
     Indication: Product used for unknown indication
     Dosage: 10 UG
     Route: 065
  28. ESTRADIOL [Concomitant]
     Active Substance: ESTRADIOL
     Indication: Product used for unknown indication
     Dosage: UNK
     Route: 065
  29. PEPCID [Concomitant]
     Active Substance: FAMOTIDINE
     Indication: Product used for unknown indication
     Dosage: UNK
     Route: 065
  30. PATANOL [Concomitant]
     Active Substance: OLOPATADINE HYDROCHLORIDE
     Indication: Product used for unknown indication
     Dosage: UNK
     Route: 065
  31. PROTONIX [Concomitant]
     Active Substance: PANTOPRAZOLE SODIUM
     Indication: Product used for unknown indication
     Dosage: UNK
     Route: 065
  32. PREDNISONE [Concomitant]
     Active Substance: PREDNISONE
     Indication: Product used for unknown indication
     Dosage: UNK
     Route: 065

REACTIONS (29)
  - Hepatic enzyme increased [Recovered/Resolved]
  - Fluid retention [Recovered/Resolved]
  - Hypoxia [Recovered/Resolved]
  - Haematochezia [Recovered/Resolved]
  - Weight decreased [Recovered/Resolved]
  - Bronchospasm [Recovered/Resolved]
  - Oxygen saturation decreased [Recovered/Resolved]
  - Eye pain [Recovered/Resolved]
  - Eye irritation [Recovered/Resolved]
  - Decreased appetite [Recovered/Resolved]
  - Chills [Recovered/Resolved]
  - Feeling hot [Recovered/Resolved]
  - Faeces discoloured [Recovered/Resolved]
  - Skin ulcer [Recovered/Resolved]
  - Left ventricular hypertrophy [Unknown]
  - Right atrial enlargement [Unknown]
  - Pulmonary arterial pressure increased [Unknown]
  - Supraventricular tachycardia [Unknown]
  - Nasopharyngitis [Recovered/Resolved]
  - Chest discomfort [Recovered/Resolved]
  - Nausea [Recovered/Resolved]
  - Dyspnoea [Recovered/Resolved]
  - Cough [Recovered/Resolved]
  - Dizziness [Recovered/Resolved]
  - Dyspnoea exertional [Recovered/Resolved]
  - Diarrhoea [Recovered/Resolved]
  - Therapy partial responder [Unknown]
  - Therapy non-responder [Unknown]
  - Expired product administered [Unknown]

NARRATIVE: CASE EVENT DATE: 20230601
